FAERS Safety Report 19290760 (Version 2)
Quarter: 2021Q2

REPORT INFORMATION
  Report Type: Report from Study
  Country: AR (occurrence: AR)
  Receive Date: 20210521
  Receipt Date: 20210527
  Transmission Date: 20210717
  Serious: Yes (Death, Hospitalization, Other)
  Sender: FDA-Public Use
  Company Number: AR-BRISTOL-MYERS SQUIBB COMPANY-BMS-2021-047187

PATIENT
  Age: 72 Year
  Sex: Male

DRUGS (6)
  1. BEMPEGALDESLEUKIN [Suspect]
     Active Substance: BEMPEGALDESLEUKIN
     Indication: RENAL CANCER
     Dosage: 0.44 MILLIGRAM, Q3WK
     Route: 042
     Dates: start: 20200825
  2. PARACETAMOL [Concomitant]
     Active Substance: ACETAMINOPHEN
     Indication: PAIN PROPHYLAXIS
     Dosage: 1 GRAM, Q8H
     Route: 048
     Dates: start: 20200915
  3. BISOPROLOL [Concomitant]
     Active Substance: BISOPROLOL
     Indication: HYPERTENSION
     Dosage: 5 MILLIGRAM, QD
     Route: 048
     Dates: start: 20170701
  4. TAMULOSIN [Concomitant]
     Active Substance: TAMSULOSIN
     Indication: BENIGN PROSTATIC HYPERPLASIA
     Dosage: 0.4 MILLIGRAM, QD
     Route: 048
     Dates: start: 20180801
  5. DEXAMETHASONE. [Concomitant]
     Active Substance: DEXAMETHASONE
     Indication: DIARRHOEA
     Dosage: 0.5 MILLIGRAM/KILOGRAM, QD
     Route: 048
     Dates: start: 20210507
  6. NIVOLUMAB [Suspect]
     Active Substance: NIVOLUMAB
     Indication: RENAL CANCER
     Dosage: 360 MILLIGRAM, Q3WK
     Route: 042
     Dates: start: 20200825

REACTIONS (3)
  - Multiple organ dysfunction syndrome [Fatal]
  - Gastrointestinal haemorrhage [Recovered/Resolved]
  - Diarrhoea [Recovered/Resolved]

NARRATIVE: CASE EVENT DATE: 20210511
